FAERS Safety Report 6259291-7 (Version None)
Quarter: 2009Q3

REPORT INFORMATION
  Report Type: 
  Country: None (occurrence: None)
  Receive Date: 20090707
  Receipt Date: 20090630
  Transmission Date: 20100115
  Serious: Yes (Hospitalization)
  Sender: FDA-Public Use
  Company Number: PHHY2009MX24336

PATIENT
  Age: 57 Year
  Sex: Female

DRUGS (2)
  1. STALEVO 100 [Suspect]
     Indication: PARKINSON'S DISEASE
     Dosage: 5 TABLET (100/25/200 MG) DAILY
     Route: 048
     Dates: start: 20060801
  2. STALEVO 100 [Suspect]
     Dosage: 5 TABLET (100/25/200 MG) DAILY
     Route: 048
     Dates: start: 20090612

REACTIONS (7)
  - CONDITION AGGRAVATED [None]
  - DIARRHOEA [None]
  - DYSKINESIA [None]
  - MEDICAL DEVICE IMPLANTATION [None]
  - MUSCLE SPASMS [None]
  - TREMOR [None]
  - VOMITING [None]
